FAERS Safety Report 20621355 (Version 1)
Quarter: 2022Q1

REPORT INFORMATION
  Report Type: Spontaneous
  Country: AU (occurrence: AU)
  Receive Date: 20220322
  Receipt Date: 20220322
  Transmission Date: 20220423
  Serious: Yes (Other)
  Sender: FDA-Public Use
  Company Number: AU-MYLANLABS-2022M1021286

PATIENT
  Age: 78 Year
  Sex: Female

DRUGS (3)
  1. GEMCITABINE [Suspect]
     Active Substance: GEMCITABINE
     Indication: Non-small cell lung cancer stage IIIB
     Dosage: UNK,INDUCTION THERAPY
     Route: 065
     Dates: start: 201809
  2. PEMETREXED [Suspect]
     Active Substance: PEMETREXED
     Indication: Non-small cell lung cancer stage IIIB
     Dosage: UNK,MAINTENANCE THERAPY
     Route: 065
     Dates: start: 201901
  3. CARBOPLATIN [Suspect]
     Active Substance: CARBOPLATIN
     Indication: Non-small cell lung cancer stage IIIB
     Dosage: UNK,INDUCTION THERAPY
     Route: 065
     Dates: start: 201809

REACTIONS (3)
  - Myelosuppression [Unknown]
  - Renal impairment [Unknown]
  - Pneumonitis [Recovering/Resolving]
